FAERS Safety Report 7050832-9 (Version None)
Quarter: 2010Q4

REPORT INFORMATION
  Report Type: 
  Country: None (occurrence: None)
  Receive Date: 20101019
  Receipt Date: 20101011
  Transmission Date: 20110411
  Serious: No
  Sender: FDA-Public Use
  Company Number: US-BIOGENIDEC-2010BI035543

PATIENT
  Age: 45 Year
  Sex: Female

DRUGS (3)
  1. TYSABRI [Suspect]
     Indication: MULTIPLE SCLEROSIS
     Route: 042
     Dates: start: 20100629
  2. LEXAPRO [Concomitant]
     Indication: ANXIETY
     Dates: start: 20100101
  3. LEXAPRO [Concomitant]
     Dates: start: 20100101

REACTIONS (3)
  - FALL [None]
  - FATIGUE [None]
  - SENSATION OF HEAVINESS [None]
